FAERS Safety Report 4389841-0 (Version None)
Quarter: 2004Q2

REPORT INFORMATION
  Report Type: 
  Country: None (occurrence: None)
  Receive Date: 20040628
  Receipt Date: 20040615
  Transmission Date: 20050107
  Serious: Yes (Hospitalization)
  Sender: FDA-Public Use
  Company Number: HQWYE467716JUN04

PATIENT
  Age: 50 Year
  Sex: Female
  Weight: 63.56 kg

DRUGS (6)
  1. RAPAMUNE [Suspect]
     Indication: PROPHYLAXIS AGAINST TRANSPLANT REJECTION
     Dosage: SEE IMAGE
     Dates: start: 20040301, end: 20040101
  2. RAPAMUNE [Suspect]
     Indication: PROPHYLAXIS AGAINST TRANSPLANT REJECTION
     Dosage: SEE IMAGE
     Dates: start: 20040101
  3. PREDNISONE TAB [Concomitant]
  4. INSULIN HUMAN INJECTION, ISOPHANE (INSULIN HUMAN INJECTION, ISOPHANE) [Concomitant]
  5. ILETIN REGULAR (INSULIN) [Concomitant]
  6. ZANTAC [Concomitant]

REACTIONS (9)
  - BODY TEMPERATURE DECREASED [None]
  - CALCIUM IONISED DECREASED [None]
  - ELECTROCARDIOGRAM QT PROLONGED [None]
  - HYPOCALCAEMIA [None]
  - JOINT STIFFNESS [None]
  - LOOSE STOOLS [None]
  - MUSCLE CRAMP [None]
  - MYALGIA [None]
  - PARAESTHESIA [None]
